FAERS Safety Report 16809124 (Version 2)
Quarter: 2021Q4

REPORT INFORMATION
  Report Type: Other
  Country: JP (occurrence: None)
  Receive Date: 20190916
  Receipt Date: 20211108
  Transmission Date: 20220303
  Serious: Yes (Other)
  Sender: FDA-Public Use
  Company Number: JP-ROCHE-2411865

PATIENT
  Sex: Male

DRUGS (1)
  1. BEVACIZUMAB [Suspect]
     Active Substance: BEVACIZUMAB
     Indication: Retinopathy of prematurity
     Dosage: 0.625 MG/0.025 ML
     Route: 050

REACTIONS (4)
  - Intraventricular haemorrhage [Unknown]
  - Necrotising colitis [Unknown]
  - Chronic respiratory disease [Unknown]
  - Off label use [Unknown]
